FAERS Safety Report 23382781 (Version 1)
Quarter: 2024Q1

REPORT INFORMATION
  Report Type: Report from Study
  Country: US (occurrence: US)
  Receive Date: 20240109
  Receipt Date: 20240109
  Transmission Date: 20240410
  Serious: Yes (Death, Other)
  Sender: FDA-Public Use
  Company Number: US-GILEAD-2021-0530540

PATIENT
  Sex: Female

DRUGS (46)
  1. AZTREONAM LYSINE [Suspect]
     Active Substance: AZTREONAM LYSINE
     Indication: Cystic fibrosis
     Dosage: 1 DOSAGE FORM, TID; 28 DAYS ON/28 DAYS OFF
     Route: 055
  2. ADVAIR HFA [Concomitant]
     Active Substance: FLUTICASONE PROPIONATE\SALMETEROL XINAFOATE
  3. ALBUTEROL SULFATE [Concomitant]
     Active Substance: ALBUTEROL SULFATE
  4. AZITHROMYCIN [Concomitant]
     Active Substance: AZITHROMYCIN
  5. FUROSEMIDE [Concomitant]
     Active Substance: FUROSEMIDE
  6. ALLOPURINOL [Concomitant]
     Active Substance: ALLOPURINOL
  7. LEVOTHYROXINE SODIUM [Concomitant]
     Active Substance: LEVOTHYROXINE SODIUM
  8. IBUPROFEN [Concomitant]
     Active Substance: IBUPROFEN
  9. LYRICA [Concomitant]
     Active Substance: PREGABALIN
  10. MONTELUKAST SODIUM [Concomitant]
     Active Substance: MONTELUKAST SODIUM
  11. OMEPRAZOLE [Concomitant]
     Active Substance: OMEPRAZOLE
  12. METFORMIN HYDROCHLORIDE [Concomitant]
     Active Substance: METFORMIN HYDROCHLORIDE
  13. ROSUVASTATIN CALCIUM [Concomitant]
     Active Substance: ROSUVASTATIN CALCIUM
  14. COLISTIMETHATE SODIUM [Concomitant]
     Active Substance: COLISTIMETHATE SODIUM
  15. SODIUM CHLORIDE [Concomitant]
     Active Substance: SODIUM CHLORIDE
  16. STERILE WATER [Concomitant]
     Active Substance: WATER
  17. NAC 500 [Concomitant]
  18. ARIKAYCE [Concomitant]
     Active Substance: AMIKACIN
  19. CALCIUM CARBONATE\CHOLECALCIFEROL [Concomitant]
     Active Substance: CALCIUM CARBONATE\CHOLECALCIFEROL
  20. ESTRACE [Concomitant]
     Active Substance: ESTRADIOL
  21. COLACE [Concomitant]
     Active Substance: DOCUSATE SODIUM
  22. FLUTICASONE PROPIONATE [Concomitant]
     Active Substance: FLUTICASONE PROPIONATE
  23. JUBLIA [Concomitant]
     Active Substance: EFINACONAZOLE
  24. LATANOPROST [Concomitant]
     Active Substance: LATANOPROST
  25. LIDOCAINE\PRILOCAINE [Concomitant]
     Active Substance: LIDOCAINE\PRILOCAINE
  26. MIRALAX [Concomitant]
     Active Substance: POLYETHYLENE GLYCOL 3350
  27. MUCINEX [Concomitant]
     Active Substance: GUAIFENESIN
  28. MUPIROCIN [Concomitant]
     Active Substance: MUPIROCIN
  29. MINERALS\VITAMINS [Concomitant]
     Active Substance: MINERALS\VITAMINS
  30. SODIUM BICARBONATE\SODIUM CHLORIDE [Concomitant]
     Active Substance: SODIUM BICARBONATE\SODIUM CHLORIDE
  31. NYSTATIN [Concomitant]
     Active Substance: NYSTATIN
  32. PANCRELIPASE [Concomitant]
     Active Substance: PANCRELIPASE
  33. POTASSIUM [Concomitant]
     Active Substance: POTASSIUM
  34. PREDNISONE [Concomitant]
     Active Substance: PREDNISONE
  35. CHOLECALCIFEROL [Concomitant]
     Active Substance: CHOLECALCIFEROL
  36. VITAMIN E [Concomitant]
     Active Substance: .ALPHA.-TOCOPHEROL
  37. SYSTANE COMPLETE [Concomitant]
     Active Substance: PROPYLENE GLYCOL
  38. SINGULAIR [Concomitant]
     Active Substance: MONTELUKAST SODIUM
  39. TART CHERRY [Concomitant]
  40. TRIKAFTA [Concomitant]
     Active Substance: ELEXACAFTOR\IVACAFTOR\TEZACAFTOR
  41. MUCINEX MAXIMUM STRENGTH [Concomitant]
     Active Substance: GUAIFENESIN
  42. LIPOFLAVONOID [ASCORBIC ACID;BIOFLAVONOIDS NOS;CHOLINE BITARTRATE;DEXP [Concomitant]
  43. STERILE WATER [Concomitant]
     Active Substance: WATER
  44. ASCORBIC ACID\CRANBERRY [Concomitant]
     Active Substance: ASCORBIC ACID\CRANBERRY
  45. PANCREASE [PANCREATIN] [Concomitant]
  46. DOXYCYCLINE HYCLATE [Concomitant]
     Active Substance: DOXYCYCLINE HYCLATE

REACTIONS (2)
  - Death [Fatal]
  - Product use issue [Unknown]
